FAERS Safety Report 5227880-4 (Version None)
Quarter: 2007Q1

REPORT INFORMATION
  Report Type: 
  Country: None (occurrence: None)
  Receive Date: 20070202
  Receipt Date: 20070123
  Transmission Date: 20070707
  Serious: Yes (Other)
  Sender: FDA-Public Use
  Company Number: FR-PFIZER INC-2006155163

PATIENT
  Sex: Female

DRUGS (3)
  1. LYRICA [Suspect]
     Indication: PAIN
  2. NEURONTIN [Suspect]
     Indication: PAIN
     Dosage: DAILY DOSE:1500MG
  3. RIVOTRIL [Concomitant]
     Dosage: DAILY DOSE:3MG

REACTIONS (3)
  - EYE SWELLING [None]
  - FACE OEDEMA [None]
  - SWOLLEN TONGUE [None]
